FAERS Safety Report 4379545-9 (Version None)
Quarter: 2004Q2

REPORT INFORMATION
  Report Type: 
  Country: None (occurrence: None)
  Receive Date: 20040614
  Receipt Date: 20040601
  Transmission Date: 20050107
  Serious: Yes (Hospitalization)
  Sender: FDA-Public Use
  Company Number: 9813510

PATIENT
  Age: 33 Year
  Sex: Male
  Weight: 48 kg

DRUGS (9)
  1. DIFLUCAN [Suspect]
     Indication: CANDIDIASIS
     Dosage: 150 MG DAILY, ORAL
     Route: 048
     Dates: start: 19980504, end: 19980506
  2. CARBAMAZEPINE [Suspect]
     Indication: EPILEPSY
     Dosage: 1200 MG TID
  3. TRANXENE [Concomitant]
  4. CIPRO [Concomitant]
  5. MEDROL [Concomitant]
  6. AMOXICILLIN/CLAVULANATE (AMOXICILLIN, CLAVULANIC ACID) [Concomitant]
  7. DIPHENHYDRAMINE HCL [Concomitant]
  8. METHYLPREDNISOLONE [Concomitant]
  9. STEROID (UNSPECIFIED) (CORTICOSTEROID NOS) [Concomitant]

REACTIONS (14)
  - CANDIDIASIS [None]
  - DEPRESSED LEVEL OF CONSCIOUSNESS [None]
  - DRUG INEFFECTIVE [None]
  - DRUG INTERACTION [None]
  - DRUG LEVEL INCREASED [None]
  - DRUG TOXICITY [None]
  - ENCEPHALOPATHY [None]
  - HEMIPARESIS [None]
  - LETHARGY [None]
  - PHARYNGOLARYNGEAL PAIN [None]
  - RASH [None]
  - RASH VESICULAR [None]
  - STUPOR [None]
  - UNRESPONSIVE TO PAIN STIMULI [None]
